FAERS Safety Report 17405227 (Version 2)
Quarter: 2020Q2

REPORT INFORMATION
  Report Type: Spontaneous
  Country: BR (occurrence: BR)
  Receive Date: 20200212
  Receipt Date: 20200626
  Transmission Date: 20200713
  Serious: Yes (Hospitalization, Other)
  Sender: FDA-Public Use
  Company Number: BR-B.I. PHARMACEUTICALS,INC./RIDGEFIELD-2020-BI-006989

PATIENT
  Age: 89 Year
  Sex: Female

DRUGS (1)
  1. GLYXAMBI [Suspect]
     Active Substance: EMPAGLIFLOZIN\LINAGLIPTIN
     Indication: CARDIAC DISORDER
     Route: 065
     Dates: end: 2020

REACTIONS (3)
  - Cerebrovascular accident [Recovered/Resolved]
  - Weight increased [Unknown]
  - Off label use [Unknown]

NARRATIVE: CASE EVENT DATE: 20191206
